FAERS Safety Report 11833833 (Version 3)
Quarter: 2016Q1

REPORT INFORMATION
  Report Type: Spontaneous
  Country: None (occurrence: US)
  Receive Date: 20151214
  Receipt Date: 20160309
  Transmission Date: 20160525
  Serious: Yes (Death, Life-Threatening, Other)
  Sender: FDA-Public Use
  Company Number: US-MEDTRONIC-1045466

PATIENT
  Age: 67 Year
  Sex: Male

DRUGS (2)
  1. OTHER MEDICATIONS (UNSPECIFIED) [Suspect]
     Active Substance: UNSPECIFIED INGREDIENT
  2. BACLOFEN UNKNOWN [Suspect]
     Active Substance: BACLOFEN
     Indication: MUSCLE SPASTICITY
     Route: 037
     Dates: start: 20151104

REACTIONS (10)
  - Sepsis [Fatal]
  - Staphylococcal infection [Fatal]
  - Incision site infection [Fatal]
  - Coma [Fatal]
  - Pneumonia aspiration [Fatal]
  - Depression [Unknown]
  - Malaise [Unknown]
  - Unevaluable event [Unknown]
  - Pyrexia [Unknown]
  - Implant site infection [Fatal]

NARRATIVE: CASE EVENT DATE: 20151203
